FAERS Safety Report 23545041 (Version 1)
Quarter: 2024Q1

REPORT INFORMATION
  Report Type: Report from Study
  Country: US (occurrence: None)
  Receive Date: 20240220
  Receipt Date: 20240220
  Transmission Date: 20240409
  Serious: Yes (Hospitalization, Other)
  Sender: FDA-Public Use
  Company Number: 2024A037348

PATIENT
  Sex: Female

DRUGS (1)
  1. TAGRISSO [Suspect]
     Active Substance: OSIMERTINIB
     Indication: Lung carcinoma cell type unspecified stage 0
     Route: 048
     Dates: start: 20211124

REACTIONS (9)
  - Bone disorder [Unknown]
  - Asthenia [Unknown]
  - Spinal pain [Unknown]
  - Poliomyelitis [Unknown]
  - Product dose omission in error [Unknown]
  - Feeling abnormal [Unknown]
  - Hypertension [Unknown]
  - Extra dose administered [Unknown]
  - Movement disorder [Unknown]
